FAERS Safety Report 14294010 (Version 1)
Quarter: 2017Q4

REPORT INFORMATION
  Report Type: Spontaneous
  Country: US (occurrence: US)
  Receive Date: 20171217
  Receipt Date: 20171217
  Transmission Date: 20180321
  Serious: Yes (Other)
  Sender: FDA-Public Use
  Company Number: US-ACI HEALTHCARE LIMITED-2037251

PATIENT
  Age: 43 Year
  Sex: Female

DRUGS (1)
  1. GABAPENTIN. [Suspect]
     Active Substance: GABAPENTIN
     Indication: NEURALGIA
     Route: 065

REACTIONS (2)
  - Toxicity to various agents [Recovering/Resolving]
  - Myoclonus [Recovering/Resolving]
